FAERS Safety Report 20364276 (Version 1)
Quarter: 2022Q1

REPORT INFORMATION
  Report Type: Spontaneous
  Country: US (occurrence: None)
  Receive Date: 20220121
  Receipt Date: 20220121
  Transmission Date: 20220423
  Serious: Yes (Other)
  Sender: FDA-Public Use
  Company Number: None

PATIENT
  Age: 51 Year
  Sex: Male
  Weight: 86.64 kg

DRUGS (1)
  1. LOSARTAN POTASSIUM [Suspect]
     Active Substance: LOSARTAN POTASSIUM
     Indication: Hypertension
     Dosage: 50 MG EVERY DAY PO?
     Route: 048
     Dates: start: 20211019, end: 20211117

REACTIONS (4)
  - Urticaria [None]
  - Mouth swelling [None]
  - Lip swelling [None]
  - Angioedema [None]

NARRATIVE: CASE EVENT DATE: 20211027
